FAERS Safety Report 24309179 (Version 3)
Quarter: 2024Q4

REPORT INFORMATION
  Report Type: Report from Study
  Country: CA (occurrence: CA)
  Receive Date: 20240911
  Receipt Date: 20241011
  Transmission Date: 20250115
  Serious: Yes (Other)
  Sender: SANDOZ
  Company Number: CA-002147023-NVSC2023CA009312

PATIENT
  Sex: Male

DRUGS (1)
  1. PIRFENIDONE [Suspect]
     Active Substance: PIRFENIDONE
     Indication: Pulmonary fibrosis
     Dosage: UNK UNK, TID
     Route: 048
     Dates: start: 20230113

REACTIONS (6)
  - Lung disorder [Unknown]
  - Illness [Unknown]
  - Gastrointestinal disorder [Unknown]
  - Forced vital capacity decreased [Unknown]
  - Product dose omission issue [Unknown]
  - Abdominal discomfort [Unknown]
